FAERS Safety Report 5381216-7 (Version None)
Quarter: 2007Q3

REPORT INFORMATION
  Report Type: 
  Country: None (occurrence: None)
  Receive Date: 20070706
  Receipt Date: 20070625
  Transmission Date: 20080115
  Serious: Yes (Other)
  Sender: FDA-Public Use
  Company Number: US-PFIZER INC-2007053262

PATIENT
  Sex: Female
  Weight: 111.6 kg

DRUGS (11)
  1. CHANTIX [Suspect]
     Indication: EX-SMOKER
  2. RISPERDAL [Concomitant]
     Indication: SCHIZOPHRENIA
  3. COMBIVENT [Concomitant]
     Indication: EMPHYSEMA
  4. WELLBUTRIN [Concomitant]
  5. LEXAPRO [Concomitant]
  6. BENICAR [Concomitant]
  7. POTASSIUM ACETATE [Concomitant]
  8. FUROSEMIDE [Concomitant]
  9. NASONEX [Concomitant]
  10. POLYSACCHARIDE-IRON COMPLEX [Concomitant]
     Dosage: DAILY DOSE:150MG
  11. OXYGEN [Concomitant]
     Indication: EMPHYSEMA

REACTIONS (2)
  - EARLY MORNING AWAKENING [None]
  - PARANOIA [None]
